FAERS Safety Report 4839736-7 (Version None)
Quarter: 2005Q4

REPORT INFORMATION
  Report Type: 
  Country: None (occurrence: None)
  Receive Date: 20051129
  Receipt Date: 20050722
  Transmission Date: 20060501
  Serious: No
  Sender: FDA-Public Use
  Company Number: US-GLAXOSMITHKLINE-A0567275A

PATIENT
  Age: 57 Year
  Sex: Female

DRUGS (5)
  1. WELLBUTRIN SR [Suspect]
     Indication: DEPRESSION
     Dosage: 200MG PER DAY
     Route: 048
     Dates: start: 19950101
  2. EFFEXOR XR [Concomitant]
     Indication: DEPRESSION
     Dosage: 37.5MG TWICE PER DAY
     Route: 048
     Dates: start: 20040601, end: 20040901
  3. RISPERDAL [Concomitant]
     Indication: ANXIETY
     Dosage: 1MG UNKNOWN
     Route: 048
     Dates: start: 20010101
  4. AMBIEN [Concomitant]
     Indication: SLEEP DISORDER
     Dosage: 5U AT NIGHT
     Route: 048
     Dates: start: 20040201
  5. LEXAPRO [Concomitant]
     Indication: DEPRESSION
     Dosage: 10U PER DAY
     Route: 048
     Dates: start: 20040301, end: 20040601

REACTIONS (2)
  - DEPRESSION [None]
  - TIC [None]
